FAERS Safety Report 7518536-3 (Version None)
Quarter: 2011Q2

REPORT INFORMATION
  Report Type: 
  Country: None (occurrence: None)
  Receive Date: 20110601
  Receipt Date: 20110601
  Transmission Date: 20111010
  Serious: Yes (Other)
  Sender: FDA-Public Use
  Company Number: None

PATIENT
  Age: 48 Year
  Sex: Male
  Weight: 79.3795 kg

DRUGS (1)
  1. FLUTICASONE PROPIONATE [Suspect]
     Indication: NASAL CONGESTION
     Dosage: 2 SPRAYS IN EACH NOSTRIL DAILY NASAL
     Route: 045
     Dates: start: 20110507, end: 20110514

REACTIONS (2)
  - HAEMORRHAGE [None]
  - ANOSMIA [None]
